FAERS Safety Report 4998602-7 (Version None)
Quarter: 2006Q2

REPORT INFORMATION
  Report Type: 
  Country: None (occurrence: None)
  Receive Date: 20060509
  Receipt Date: 20060428
  Transmission Date: 20061013
  Serious: Yes (Hospitalization)
  Sender: FDA-Public Use
  Company Number: 2005-01788

PATIENT
  Age: 71 Year
  Sex: Male
  Weight: 73 kg

DRUGS (3)
  1. VELCADE [Suspect]
     Indication: MULTIPLE MYELOMA
     Dosage: 2.30 MG, UNK; INTRAVENOUS ; 1.00 MG/M2, UNK; INTRAVENOUS
     Route: 042
     Dates: start: 20050708, end: 20050812
  2. VELCADE [Suspect]
     Indication: MULTIPLE MYELOMA
     Dosage: 2.30 MG, UNK; INTRAVENOUS ; 1.00 MG/M2, UNK; INTRAVENOUS
     Route: 042
     Dates: start: 20050801, end: 20050909
  3. ZOLEDRONIC ACID [Concomitant]

REACTIONS (8)
  - CONTUSION [None]
  - DISEASE PROGRESSION [None]
  - FALL [None]
  - HEART RATE INCREASED [None]
  - ORTHOSTATIC HYPOTENSION [None]
  - PLATELET COUNT DECREASED [None]
  - SKIN LACERATION [None]
  - SYNCOPE [None]
